FAERS Safety Report 20086441 (Version 2)
Quarter: 2022Q1

REPORT INFORMATION
  Report Type: Spontaneous
  Country: US (occurrence: US)
  Receive Date: 20211118
  Receipt Date: 20220118
  Transmission Date: 20220424
  Serious: No
  Sender: FDA-Public Use
  Company Number: US-BIOGEN-2021BI01068773

PATIENT
  Age: 49 Year
  Sex: Female

DRUGS (1)
  1. TECFIDERA [Suspect]
     Active Substance: DIMETHYL FUMARATE
     Indication: Multiple sclerosis
     Route: 048
     Dates: start: 202106

REACTIONS (5)
  - Product dose omission issue [Unknown]
  - Accident [Unknown]
  - Flushing [Unknown]
  - Pruritus [Unknown]
  - Balance disorder [Unknown]

NARRATIVE: CASE EVENT DATE: 20211112
